FAERS Safety Report 5196463-7 (Version None)
Quarter: 2006Q4

REPORT INFORMATION
  Report Type: 
  Country: None (occurrence: None)
  Receive Date: 20061227
  Receipt Date: 20061212
  Transmission Date: 20070319
  Serious: Yes (Other)
  Sender: FDA-Public Use
  Company Number: GXKR2006LB08183

PATIENT
  Age: 68 Year
  Sex: Female

DRUGS (7)
  1. PARACETAMOL (NGX) (PARACETAMOL), 500MG [Suspect]
     Indication: HEADACHE
     Dosage: 500 MG, BID,
  2. GLYBURIDE [Concomitant]
  3. AMLODIPINE [Concomitant]
  4. VALSARTAN [Concomitant]
  5. FUROSEMIDE [Concomitant]
  6. AMIODARONE HCL [Concomitant]
  7. SIMVASTATIN [Concomitant]

REACTIONS (2)
  - ACUTE RESPIRATORY DISTRESS SYNDROME [None]
  - HIDRADENITIS [None]
